FAERS Safety Report 8320184 (Version 3)
Quarter: 2012Q4

REPORT INFORMATION
  Report Type: 
  Country: US (occurrence: US)
  Receive Date: 20120103
  Receipt Date: 20121009
  Transmission Date: 20130627
  Serious: Yes (Death, Other)
  Sender: FDA-Public Use
  Company Number: US-ASTRAZENECA-2011SE76082

PATIENT
  Age: 70 Month
  Sex: Male

DRUGS (1)
  1. NEXIUM [Suspect]
     Route: 048

REACTIONS (8)
  - Death [Fatal]
  - Cardiac disorder [Unknown]
  - Lung disorder [Unknown]
  - Convulsion [Unknown]
  - Immune system disorder [Unknown]
  - Respiratory disorder [Unknown]
  - Malaise [Unknown]
  - Malaise [Unknown]
